FAERS Safety Report 6210270-5 (Version None)
Quarter: 2009Q2

REPORT INFORMATION
  Report Type: 
  Country: None (occurrence: None)
  Receive Date: 20090527
  Receipt Date: 20090513
  Transmission Date: 20091009
  Serious: No
  Sender: FDA-Public Use
  Company Number: 8031022

PATIENT
  Age: 43 Year
  Sex: Female

DRUGS (6)
  1. CDP870 [Suspect]
     Indication: RHEUMATOID ARTHRITIS
     Dosage: 400 MG /M SC
     Route: 058
     Dates: start: 20030314, end: 20030801
  2. CDP870 [Suspect]
     Indication: RHEUMATOID ARTHRITIS
     Dosage: 400 MG /M SC
     Route: 058
     Dates: start: 20030828, end: 20080319
  3. INDOMETHACIN [Concomitant]
  4. DEPO PROVERA /00115201/ [Concomitant]
  5. ESOMEPRAZOLE MAGNESIUM [Concomitant]
  6. PICOLAX [Concomitant]

REACTIONS (16)
  - BLOOD CULTURE POSITIVE [None]
  - BLOOD SODIUM DECREASED [None]
  - CHEST PAIN [None]
  - DIVERTICULITIS [None]
  - ECG SIGNS OF MYOCARDIAL ISCHAEMIA [None]
  - ERYTHEMA [None]
  - FISTULA [None]
  - INTESTINAL DILATATION [None]
  - PELVIC ABSCESS [None]
  - PERIDIVERTICULAR ABSCESS [None]
  - POOR VENOUS ACCESS [None]
  - PROTEIN URINE PRESENT [None]
  - RECTAL HAEMORRHAGE [None]
  - SINUS TACHYCARDIA [None]
  - STAPHYLOCOCCAL INFECTION [None]
  - WHITE BLOOD CELLS URINE POSITIVE [None]
